FAERS Safety Report 6763131-7 (Version None)
Quarter: 2010Q2

REPORT INFORMATION
  Report Type: 
  Country: None (occurrence: None)
  Receive Date: 20100608
  Receipt Date: 20100608
  Transmission Date: 20101027
  Serious: No
  Sender: FDA-Public Use
  Company Number: None

PATIENT
  Age: 45 Year
  Sex: Female
  Weight: 68.0396 kg

DRUGS (1)
  1. CLOBETASOL PROPIONATE [Suspect]
     Indication: LICHEN SCLEROSUS
     Dosage: TOPICAL APPLICATION 2 TIMES A DAY CUTANEOUS
     Route: 003
     Dates: start: 20100223, end: 20100314

REACTIONS (4)
  - ATROPHIC VULVOVAGINITIS [None]
  - ATROPHY [None]
  - GENITAL DISORDER FEMALE [None]
  - SEXUAL DYSFUNCTION [None]
